APPROVED DRUG PRODUCT: MEPROBAMATE
Active Ingredient: MEPROBAMATE
Strength: 600MG
Dosage Form/Route: TABLET;ORAL
Application: A084181 | Product #001
Applicant: IVAX PHARMACEUTICALS INC SUB TEVA PHARMACEUTICALS USA
Approved: Approved Prior to Jan 1, 1982 | RLD: No | RS: No | Type: DISCN